FAERS Safety Report 5647721-0 (Version None)
Quarter: 2008Q1

REPORT INFORMATION
  Report Type: 
  Country: None (occurrence: None)
  Receive Date: 20080303
  Receipt Date: 20080220
  Transmission Date: 20080703
  Serious: Yes (Other)
  Sender: FDA-Public Use
  Company Number: JP-PFIZER INC-2008012430

PATIENT
  Sex: Male
  Weight: 39.5 kg

DRUGS (14)
  1. ZITHROMAX [Suspect]
     Indication: NASOPHARYNGITIS
     Dosage: DAILY DOSE:500MG
     Route: 048
     Dates: start: 20080130, end: 20080201
  2. PAXIL [Suspect]
     Route: 048
  3. MEDICON [Concomitant]
     Route: 048
     Dates: start: 20080129, end: 20080131
  4. PL [Concomitant]
     Route: 048
     Dates: start: 20080129, end: 20080131
  5. ALL OTHER THERAPEUTIC PRODUCTS [Concomitant]
  6. MUCOSTA [Concomitant]
     Route: 048
  7. FAMOTIDINE [Concomitant]
     Route: 048
  8. RISUMIC [Concomitant]
     Route: 048
  9. CALTAN [Concomitant]
     Route: 048
  10. RENAGEL [Concomitant]
     Route: 048
  11. OPALMON [Concomitant]
     Route: 048
  12. CODEINE PHOSPHATE [Concomitant]
     Route: 048
  13. MUCODYNE [Concomitant]
     Route: 048
     Dates: start: 20080129, end: 20080131
  14. DARBEPOETIN ALFA [Concomitant]
     Route: 042

REACTIONS (1)
  - DELIRIUM [None]
